FAERS Safety Report 8097934-6 (Version None)
Quarter: 2012Q1

REPORT INFORMATION
  Report Type: 
  Country: None (occurrence: None)
  Receive Date: 20120128
  Receipt Date: 20110721
  Transmission Date: 20120608
  Serious: No
  Sender: FDA-Public Use
  Company Number: US-ABBOTT-11P-163-0840875-00

PATIENT
  Age: 57 Year
  Sex: Female

DRUGS (3)
  1. HYDROXYCHLOROQUINE SULFATE [Concomitant]
     Indication: RHEUMATOID ARTHRITIS
  2. HUMIRA [Suspect]
     Indication: RHEUMATOID ARTHRITIS
     Dates: start: 20110501
  3. PREDNISONE TAB [Concomitant]
     Indication: RHEUMATOID ARTHRITIS

REACTIONS (5)
  - FEELING OF BODY TEMPERATURE CHANGE [None]
  - CONDITION AGGRAVATED [None]
  - NAUSEA [None]
  - ARTHRALGIA [None]
  - INFLUENZA [None]
